FAERS Safety Report 4754174-3 (Version None)
Quarter: 2005Q3

REPORT INFORMATION
  Report Type: 
  Country: None (occurrence: None)
  Receive Date: 20050826
  Receipt Date: 19980622
  Transmission Date: 20060218
  Serious: Yes (Other)
  Sender: FDA-Public Use
  Company Number: JP-ABBOTT-05P-087-0306489-00

PATIENT
  Age: 62 Year
  Sex: Male

DRUGS (8)
  1. FERO GRADUMET TABLETS [Suspect]
     Indication: IRON DEFICIENCY ANAEMIA
     Route: 048
     Dates: start: 19970901, end: 19980422
  2. FERO GRADUMET TABLETS [Suspect]
     Dates: start: 19980609
  3. PREDNISOLONE [Concomitant]
     Indication: DRUG USE FOR UNKNOWN INDICATION
     Dates: start: 19980612
  4. TROXIPIDE [Concomitant]
     Indication: DRUG USE FOR UNKNOWN INDICATION
     Route: 048
     Dates: start: 19970901, end: 19980422
  5. SOFALCONE [Concomitant]
     Indication: DRUG USE FOR UNKNOWN INDICATION
     Route: 048
     Dates: start: 19970901, end: 19980422
  6. COUGHCODE-N [Concomitant]
     Indication: DRUG USE FOR UNKNOWN INDICATION
     Route: 048
     Dates: start: 19970901, end: 19980422
  7. CLARITHROMYCIN [Concomitant]
     Indication: DRUG USE FOR UNKNOWN INDICATION
     Route: 048
     Dates: start: 19970901, end: 19980422
  8. SALICYLAMIDE, ACETAMINOPHEN, CAFFEINE, PROMETHAZINE, METHYLENEDISALIC [Concomitant]
     Indication: DRUG USE FOR UNKNOWN INDICATION
     Dates: start: 19980609

REACTIONS (2)
  - EOSINOPHILIC PNEUMONIA [None]
  - PNEUMONIA [None]
